FAERS Safety Report 10036171 (Version 3)
Quarter: 2015Q3

REPORT INFORMATION
  Report Type: Spontaneous
  Country: US (occurrence: US)
  Receive Date: 20140325
  Receipt Date: 20150727
  Transmission Date: 20151125
  Serious: Yes (Death, Hospitalization, Disabling, Other)
  Sender: FDA-Public Use
  Company Number: US-009507513-1403USA011659

PATIENT
  Sex: Male
  Weight: 61.22 kg

DRUGS (2)
  1. JANUMET [Suspect]
     Active Substance: METFORMIN HYDROCHLORIDE\SITAGLIPTIN PHOSPHATE
     Dosage: 1000/50MG
     Route: 048
     Dates: start: 20120212, end: 201305
  2. BYETTA [Suspect]
     Active Substance: EXENATIDE
     Dosage: UNK
     Dates: start: 20120212, end: 201305

REACTIONS (4)
  - Periodontal disease [Unknown]
  - Death [Fatal]
  - Pancreatic carcinoma [Unknown]
  - Gingivitis [Unknown]

NARRATIVE: CASE EVENT DATE: 2012
